FAERS Safety Report 24805162 (Version 1)
Quarter: 2025Q1

REPORT INFORMATION
  Report Type: Spontaneous
  Country: CN (occurrence: CN)
  Receive Date: 20250103
  Receipt Date: 20250103
  Transmission Date: 20250409
  Serious: Yes (Life-Threatening, Hospitalization, Other)
  Sender: ASTELLAS
  Company Number: CN-ASTELLAS-2025-AER-000055

PATIENT
  Age: 45 Year
  Sex: Male

DRUGS (1)
  1. TACROLIMUS [Suspect]
     Active Substance: TACROLIMUS
     Indication: Liver transplant
     Route: 065
     Dates: start: 201507

REACTIONS (5)
  - Post transplant lymphoproliferative disorder [Unknown]
  - Burkitt^s lymphoma [Unknown]
  - Tumour lysis syndrome [Unknown]
  - Metastases to spinal cord [Unknown]
  - Metastasis [Unknown]

NARRATIVE: CASE EVENT DATE: 20220719
